FAERS Safety Report 10722800 (Version 1)
Quarter: 2015Q1

REPORT INFORMATION
  Report Type: Spontaneous
  Country: GB (occurrence: GB)
  Receive Date: 20150120
  Receipt Date: 20150120
  Transmission Date: 20150721
  Serious: Yes (Other)
  Sender: FDA-Public Use
  Company Number: GB-ACCORD-028053

PATIENT
  Age: 42 Year
  Sex: Male
  Weight: 83 kg

DRUGS (3)
  1. AMLODIPINE [Suspect]
     Active Substance: AMLODIPINE BESYLATE
     Indication: RENAL HYPERTENSION
     Dosage: RECEIVED AMLODIPINE AT DOSE OF 5 MG ON 12-DEC-2014, DOSE WAS INCREASED TO 10 MG AFTER 3 DAYS
     Route: 048
     Dates: start: 20141212, end: 20141229
  2. ALFACALCIDOL [Concomitant]
     Active Substance: ALFACALCIDOL
  3. ATENOLOL/ATENOLOL HYDROCHLORIDE [Concomitant]
     Dates: end: 2014

REACTIONS (4)
  - Hot flush [Recovered/Resolved]
  - Malaise [Recovered/Resolved]
  - Headache [Recovered/Resolved]
  - Anxiety [Recovering/Resolving]

NARRATIVE: CASE EVENT DATE: 20141215
